FAERS Safety Report 8391204-4 (Version None)
Quarter: 2012Q2

REPORT INFORMATION
  Report Type: 
  Country: None (occurrence: None)
  Receive Date: 20120529
  Receipt Date: 20120516
  Transmission Date: 20120825
  Serious: Yes (Other)
  Sender: FDA-Public Use
  Company Number: CA-JNJFOC-20120204140

PATIENT
  Sex: Male
  Weight: 92 kg

DRUGS (2)
  1. REMICADE [Suspect]
     Indication: CROHN'S DISEASE
     Route: 042
     Dates: start: 20020101
  2. IMURAN [Concomitant]
     Dosage: THERAPY DURATION OF 10 YEARS
     Dates: end: 20040101

REACTIONS (1)
  - SQUAMOUS CELL CARCINOMA [None]
